FAERS Safety Report 8910070 (Version 2)
Quarter: 2012Q4

REPORT INFORMATION
  Report Type: 
  Country: JP (occurrence: JP)
  Receive Date: 20121115
  Receipt Date: 20121123
  Transmission Date: 20130627
  Serious: Yes (Other)
  Sender: FDA-Public Use
  Company Number: JP-BRISTOL-MYERS SQUIBB COMPANY-16464414

PATIENT
  Age: 26 Year
  Sex: Female
  Weight: 48 kg

DRUGS (11)
  1. ABILIFY TABS [Suspect]
     Indication: BIPOLAR DISORDER
     Dosage: 23Mar10-10Dec10,16Au11-13Mar12:bid,14Mar12-28Mar:qd(3mg).11Dec10-15Aug11:bid,14Mar12-28Mar:qd(6mg)
     Route: 048
     Dates: start: 20100323
  2. ABILIFY TABS [Suspect]
     Indication: IMPULSIVE BEHAVIOUR
     Dosage: 23Mar10-10Dec10,16Au11-13Mar12:bid,14Mar12-28Mar:qd(3mg).11Dec10-15Aug11:bid,14Mar12-28Mar:qd(6mg)
     Route: 048
     Dates: start: 20100323
  3. ABILIFY TABS [Suspect]
     Indication: AGGRESSION
     Dosage: 23Mar10-10Dec10,16Au11-13Mar12:bid,14Mar12-28Mar:qd(3mg).11Dec10-15Aug11:bid,14Mar12-28Mar:qd(6mg)
     Route: 048
     Dates: start: 20100323
  4. ABILIFY TABS [Suspect]
     Indication: ANGER
     Dosage: 23Mar10-10Dec10,16Au11-13Mar12:bid,14Mar12-28Mar:qd(3mg).11Dec10-15Aug11:bid,14Mar12-28Mar:qd(6mg)
     Route: 048
     Dates: start: 20100323
  5. ABILIFY TABS [Suspect]
     Indication: HYPOMANIA
     Dosage: 23Mar10-10Dec10,16Au11-13Mar12:bid,14Mar12-28Mar:qd(3mg).11Dec10-15Aug11:bid,14Mar12-28Mar:qd(6mg)
     Route: 048
     Dates: start: 20100323
  6. ZOLOFT [Concomitant]
     Dosage: Tablet
  7. LIMAS [Concomitant]
     Dosage: Tablet
  8. SODIUM VALPROATE [Concomitant]
     Dosage: Tablet
  9. HALCION [Concomitant]
     Dosage: tabs
     Dates: start: 20100323, end: 20101130
  10. TOLEDOMIN [Concomitant]
     Dosage: tabs
     Dates: start: 20100323, end: 20101223
  11. ANAFRANIL [Concomitant]
     Dosage: tabs
     Dates: start: 20100323, end: 20101223

REACTIONS (4)
  - Premature labour [Unknown]
  - Exposure during breast feeding [Unknown]
  - Pregnancy [Recovered/Resolved]
  - Live birth [Unknown]
